FAERS Safety Report 9137420 (Version 1)
Quarter: 2013Q1

REPORT INFORMATION
  Report Type: Spontaneous
  Country: US (occurrence: US)
  Receive Date: 20130304
  Receipt Date: 20130304
  Transmission Date: 20140127
  Serious: No
  Sender: FDA-Public Use
  Company Number: US-ABBOTT-13P-163-1038285-00

PATIENT
  Sex: 0

DRUGS (2)
  1. ANDROGEL [Suspect]
     Indication: PRODUCT USED FOR UNKNOWN INDICATION
     Dosage: 3.75 GRAMS DAILY
  2. ANDROGEL [Suspect]
     Dosage: 5 GRAMS DAILY

REACTIONS (1)
  - Blood testosterone increased [Unknown]
